FAERS Safety Report 15736765 (Version 1)
Quarter: 2018Q4

REPORT INFORMATION
  Report Type: Spontaneous
  Country: US (occurrence: US)
  Receive Date: 20181218
  Receipt Date: 20181218
  Transmission Date: 20190205
  Serious: No
  Sender: FDA-Public Use
  Company Number: US-PERRIGO-17US032005

PATIENT
  Age: 75 Year
  Sex: Male
  Weight: 65.76 kg

DRUGS (2)
  1. ATENOLOL. [Concomitant]
     Active Substance: ATENOLOL
     Indication: HYPERTENSION
     Dosage: UNK
     Route: 065
  2. BACITRACIN. [Suspect]
     Active Substance: BACITRACIN
     Indication: HORDEOLUM
     Dosage: 1 INCH, TID
     Route: 047
     Dates: start: 20171215, end: 20171217

REACTIONS (6)
  - Application site inflammation [Recovered/Resolved]
  - Lacrimation increased [Recovered/Resolved]
  - Application site discharge [Recovered/Resolved]
  - Visual impairment [Recovered/Resolved]
  - Application site erythema [Not Recovered/Not Resolved]
  - Application site irritation [Recovered/Resolved]

NARRATIVE: CASE EVENT DATE: 20171216
